FAERS Safety Report 9285588 (Version 1)
Quarter: 2013Q2

REPORT INFORMATION
  Report Type: Report from Study
  Country: AU (occurrence: AU)
  Receive Date: 20130513
  Receipt Date: 20130513
  Transmission Date: 20140414
  Serious: Yes (Other)
  Sender: FDA-Public Use
  Company Number: PHHY2013AU046828

PATIENT
  Sex: Male

DRUGS (4)
  1. ACLASTA [Suspect]
     Dosage: UNK
     Route: 042
     Dates: start: 20100422
  2. ACLASTA [Suspect]
     Dosage: UNK
     Route: 042
     Dates: start: 20110503
  3. ACLASTA [Suspect]
     Dosage: UNK
     Route: 042
     Dates: start: 20120517
  4. ACLASTA [Suspect]
     Dosage: UNK
     Route: 042
     Dates: start: 20130506

REACTIONS (1)
  - Cataract [Not Recovered/Not Resolved]
